FAERS Safety Report 4341557-9 (Version None)
Quarter: 2004Q2

REPORT INFORMATION
  Report Type: 
  Country: None (occurrence: None)
  Receive Date: 20040415
  Receipt Date: 20040405
  Transmission Date: 20050107
  Serious: Yes (Disabling, Other)
  Sender: FDA-Public Use
  Company Number: 2004-04-0183

PATIENT
  Age: 58 Year
  Sex: Female

DRUGS (5)
  1. TRILAFON [Suspect]
     Indication: PSYCHOTIC DISORDER
     Dosage: 16 MG QD ORAL
     Route: 048
     Dates: start: 19750101, end: 20031001
  2. TRILAFON [Suspect]
     Indication: SCHIZOPHRENIA
     Dosage: 16 MG QD ORAL
     Route: 048
     Dates: start: 19750101, end: 20031001
  3. CENTYL K [Concomitant]
  4. ATENOLOL [Concomitant]
  5. IMIPRAMINE [Concomitant]

REACTIONS (7)
  - DIABETES MELLITUS [None]
  - DIFFICULTY IN WALKING [None]
  - DRUG INEFFECTIVE [None]
  - DYSPNOEA EXERTIONAL [None]
  - HYPERVENTILATION [None]
  - SENSATION OF PRESSURE [None]
  - SUICIDE ATTEMPT [None]
